FAERS Safety Report 8154249-5 (Version None)
Quarter: 2012Q1

REPORT INFORMATION
  Report Type: 
  Country: None (occurrence: None)
  Receive Date: 20120217
  Receipt Date: 20120217
  Transmission Date: 20120608
  Serious: No
  Sender: FDA-Public Use
  Company Number: None

PATIENT
  Age: 5 Year
  Sex: Female

DRUGS (1)
  1. EPIPEN [Suspect]

REACTIONS (4)
  - ACCIDENTAL DRUG INTAKE BY CHILD [None]
  - FAILURE OF CHILD RESISTANT MECHANISM FOR PHARMACEUTICAL PRODUCT [None]
  - FOREIGN BODY [None]
  - INJURY ASSOCIATED WITH DEVICE [None]
